FAERS Safety Report 5530956-5 (Version None)
Quarter: 2007Q4

REPORT INFORMATION
  Report Type: 
  Country: None (occurrence: None)
  Receive Date: 20071130
  Receipt Date: 20071120
  Transmission Date: 20080405
  Serious: Yes (Other)
  Sender: FDA-Public Use
  Company Number: US-PFIZER INC-2007080815

PATIENT
  Age: 84 Year
  Sex: Female

DRUGS (2)
  1. CELEBREX [Suspect]
     Indication: OSTEOARTHRITIS
     Dosage: DAILY DOSE:200MG
  2. NORVASC [Concomitant]
     Indication: BLOOD PRESSURE

REACTIONS (5)
  - AMYLOIDOSIS [None]
  - FACE OEDEMA [None]
  - GENERALISED OEDEMA [None]
  - MULTIPLE MYELOMA [None]
  - RASH [None]
